FAERS Safety Report 21186018 (Version 1)
Quarter: 2022Q3

REPORT INFORMATION
  Report Type: Spontaneous
  Country: US (occurrence: None)
  Receive Date: 20220808
  Receipt Date: 20220808
  Transmission Date: 20221027
  Serious: Yes (Death)
  Sender: FDA-Public Use
  Company Number: None

PATIENT
  Age: 72 Year
  Sex: Male

DRUGS (1)
  1. POMALYST [Suspect]
     Active Substance: POMALIDOMIDE
     Indication: Plasma cell myeloma
     Dosage: FREQUENCY : DAILY;?
     Route: 048
     Dates: start: 20210114, end: 20220719

REACTIONS (6)
  - Confusional state [None]
  - Septic shock [None]
  - Urinary tract infection [None]
  - Hypovolaemic shock [None]
  - Gastrointestinal haemorrhage [None]
  - Hospice care [None]

NARRATIVE: CASE EVENT DATE: 20220721
